FAERS Safety Report 5295344-8 (Version None)
Quarter: 2007Q2

REPORT INFORMATION
  Report Type: 
  Country: None (occurrence: None)
  Receive Date: 20070412
  Receipt Date: 20070406
  Transmission Date: 20071010
  Serious: No
  Sender: FDA-Public Use
  Company Number: JP-PFIZER INC-2007008726

PATIENT
  Sex: Male
  Weight: 22.8 kg

DRUGS (4)
  1. GABAPENTIN [Suspect]
     Indication: PARTIAL SEIZURES
     Route: 048
     Dates: start: 20070104, end: 20070208
  2. DEPAKENE [Suspect]
     Indication: EPILEPSY
     Dosage: DAILY DOSE:200MG
     Route: 048
  3. EXCEGRAN [Suspect]
     Indication: EPILEPSY
     Dosage: DAILY DOSE:150MG
     Route: 048
  4. LEVOCARNITINE [Concomitant]
     Route: 048

REACTIONS (3)
  - ABNORMAL FAECES [None]
  - DRUG INEFFECTIVE [None]
  - SOMNOLENCE [None]
